FAERS Safety Report 13395133 (Version 1)
Quarter: 2017Q1

REPORT INFORMATION
  Report Type: Spontaneous
  Country: US (occurrence: US)
  Receive Date: 20170331
  Receipt Date: 20170331
  Transmission Date: 20170429
  Serious: No
  Sender: FDA-Public Use
  Company Number: None

PATIENT
  Age: 48 Year
  Sex: Female

DRUGS (1)
  1. HUMIRA [Suspect]
     Active Substance: ADALIMUMAB
     Indication: CROHN^S DISEASE
     Dosage: ROUTE - S
     Dates: start: 20161025, end: 20170228

REACTIONS (4)
  - Thyroid mass [None]
  - Therapy cessation [None]
  - Breast cancer female [None]
  - Drug effect incomplete [None]

NARRATIVE: CASE EVENT DATE: 20170208
